FAERS Safety Report 9938652 (Version 2)
Quarter: 2014Q2

REPORT INFORMATION
  Report Type: Report from Study
  Country: DE (occurrence: DE)
  Receive Date: 20140303
  Receipt Date: 20140415
  Transmission Date: 20141212
  Serious: Yes (Death)
  Sender: FDA-Public Use
  Company Number: DE-BEH-2014040864

PATIENT
  Age: 71 Year
  Sex: Male
  Weight: 70 kg

DRUGS (4)
  1. PRIVIGEN [Suspect]
     Indication: INFECTION
     Dosage: INFUSION RATE MIN./MAX.: 1.7 ML/MIN
     Route: 042
     Dates: start: 20131002, end: 20131002
  2. PRIVIGEN [Suspect]
     Indication: SECONDARY IMMUNODEFICIENCY
     Dosage: INFUSION RATE MIN./MAX.: 1.7 ML/MIN
     Route: 042
     Dates: start: 20131030, end: 20131030
  3. PRIVIGEN [Suspect]
     Indication: CHRONIC LYMPHOCYTIC LEUKAEMIA
     Dosage: INFUSION RATE MIN./MAX.: 1.7 ML/MIN
     Route: 042
     Dates: start: 20131127, end: 20131127
  4. PRIVIGEN [Suspect]
     Dosage: INFUSION RATE MIN./MAX.: 1.7 ML/MIN
     Route: 042
     Dates: start: 20131230, end: 20131230

REACTIONS (1)
  - Colon cancer metastatic [Fatal]
